FAERS Safety Report 5604599-9 (Version None)
Quarter: 2008Q1

REPORT INFORMATION
  Report Type: 
  Country: None (occurrence: None)
  Receive Date: 20080124
  Receipt Date: 20080124
  Transmission Date: 20080703
  Serious: Yes (Hospitalization)
  Sender: FDA-Public Use
  Company Number: None

PATIENT
  Age: 86 Year
  Sex: Male

DRUGS (2)
  1. LISINOPRIL [Suspect]
     Indication: HYPERTENSION
     Dosage: 5MG  EVERY DAY  PO
     Route: 048
     Dates: start: 20071226, end: 20080118
  2. METOPROLOL TARTRATE [Suspect]
     Dosage: 12.5MG EVERY DAY PO
     Route: 048
     Dates: start: 20071226, end: 20080118

REACTIONS (2)
  - DIARRHOEA [None]
  - HYPOTENSION [None]
